FAERS Safety Report 5134035-0 (Version None)
Quarter: 2006Q4

REPORT INFORMATION
  Report Type: 
  Country: None (occurrence: None)
  Receive Date: 20061019
  Receipt Date: 20061016
  Transmission Date: 20070319
  Serious: Yes (Hospitalization)
  Sender: FDA-Public Use
  Company Number: WAES 0610POL00008

PATIENT
  Age: 80 Year
  Sex: Female

DRUGS (11)
  1. COZAAR [Suspect]
     Indication: CARDIAC FAILURE
     Dosage: PO
     Route: 048
     Dates: start: 20041220
  2. SPIRONOLACTONE [Suspect]
     Indication: CARDIAC FAILURE
     Dosage: 25 MG/DAILY PO
     Route: 048
     Dates: start: 20060912, end: 20060925
  3. ACENOCOUMAROL [Concomitant]
  4. ALLOPURINOL [Concomitant]
  5. CARVEDILOL [Concomitant]
  6. FUROSEMIDE [Concomitant]
  7. NPH INSULIN [Concomitant]
  8. ISOSORBIDE MONONITRATE [Concomitant]
  9. LEVOTHYROXINE SODIUM [Concomitant]
  10. METILDIGOXIN [Concomitant]
  11. POTASSIUM CHLORIDE [Concomitant]

REACTIONS (10)
  - ASTHENIA [None]
  - ATRIAL FIBRILLATION [None]
  - BLOOD CREATININE INCREASED [None]
  - BLOOD POTASSIUM INCREASED [None]
  - CARDIAC FAILURE [None]
  - CONDITION AGGRAVATED [None]
  - DIABETIC NEPHROPATHY [None]
  - HEART RATE DECREASED [None]
  - NAUSEA [None]
  - NODAL RHYTHM [None]
